FAERS Safety Report 25750601 (Version 1)
Quarter: 2025Q3

REPORT INFORMATION
  Report Type: Spontaneous
  Country: EU (occurrence: EU)
  Receive Date: 20250902
  Receipt Date: 20250902
  Transmission Date: 20251020
  Serious: Yes (Other)
  Sender: MYLAN
  Company Number: None

PATIENT
  Age: 20 Year
  Sex: Female

DRUGS (4)
  1. TRAMADOL [Suspect]
     Active Substance: TRAMADOL
     Indication: Renal colic
     Dates: start: 20250808, end: 20250811
  2. TRAMADOL [Suspect]
     Active Substance: TRAMADOL
     Route: 048
     Dates: start: 20250808, end: 20250811
  3. TRAMADOL [Suspect]
     Active Substance: TRAMADOL
     Route: 048
     Dates: start: 20250808, end: 20250811
  4. TRAMADOL [Suspect]
     Active Substance: TRAMADOL
     Dates: start: 20250808, end: 20250811

REACTIONS (3)
  - Vomiting [Recovered/Resolved]
  - Haematemesis [Recovered/Resolved]
  - Mallory-Weiss syndrome [Recovered/Resolved]

NARRATIVE: CASE EVENT DATE: 20250809
